FAERS Safety Report 6914502 (Version 2)
Quarter: 2020Q3

REPORT INFORMATION
  Report Type: Report from Study
  Country: US (occurrence: US)
  Receive Date: 20090220
  Receipt Date: 20090316
  Transmission Date: 20201104
  Serious: Yes (Hospitalization)
  Sender: FDA-Public Use
  Company Number: US-ROCHE-613810

PATIENT
  Age: 71 Year
  Sex: Female

DRUGS (10)
  1. ATIVAN [Concomitant]
     Active Substance: LORAZEPAM
     Dosage: PRN: AS PER NEEDED
  2. ARIMIDEX [Concomitant]
     Active Substance: ANASTROZOLE
  3. MULTIVITAMIN NOS [Concomitant]
  4. CALCIUM [Concomitant]
     Active Substance: CALCIUM
  5. LIDODERM [Concomitant]
     Active Substance: LIDOCAINE
     Dosage: LIDODERM PATCH ACROSS CHEST 5%
  6. CRANBERRY. [Concomitant]
     Active Substance: CRANBERRY
     Dosage: FORM: PILL
  7. LACTOBACILLUS ACIDOPHILUS [Concomitant]
     Active Substance: LACTOBACILLUS ACIDOPHILUS
  8. PEPCID [Concomitant]
     Active Substance: FAMOTIDINE
     Dosage: BEFORE MEALS
  9. CYMBALTA [Concomitant]
     Active Substance: DULOXETINE HYDROCHLORIDE
  10. IBANDRONIC ACID. [Suspect]
     Active Substance: IBANDRONIC ACID
     Indication: OSTEOPENIA
     Route: 048

REACTIONS (2)
  - Pyrexia [Unknown]
  - Urinary tract infection [Unknown]

NARRATIVE: CASE EVENT DATE: 20090202
